FAERS Safety Report 13787686 (Version 1)
Quarter: 2017Q3

REPORT INFORMATION
  Report Type: Spontaneous
  Country: US (occurrence: US)
  Receive Date: 20170725
  Receipt Date: 20170725
  Transmission Date: 20171127
  Serious: No
  Sender: FDA-Public Use
  Company Number: US-JNJFOC-20161118526

PATIENT
  Sex: Female

DRUGS (3)
  1. EUCALYPTUS OIL [Concomitant]
     Active Substance: EUCALYPTUS OIL
     Indication: ROUTINE HEALTH MAINTENANCE
     Route: 065
  2. CHILDRENS MOTRIN [Suspect]
     Active Substance: IBUPROFEN
     Indication: BODY TEMPERATURE
     Dosage: AT LEAST 2 TIMES
     Route: 048
  3. CHILDRENS MOTRIN [Suspect]
     Active Substance: IBUPROFEN
     Indication: VIRAL UPPER RESPIRATORY TRACT INFECTION
     Dosage: AT LEAST 2 TIMES
     Route: 048

REACTIONS (1)
  - Drug ineffective [Unknown]
